FAERS Safety Report 4430580-1 (Version None)
Quarter: 2004Q3

REPORT INFORMATION
  Report Type: 
  Country: None (occurrence: None)
  Receive Date: 20040818
  Receipt Date: 20040804
  Transmission Date: 20050211
  Serious: Yes (Hospitalization, Other)
  Sender: FDA-Public Use
  Company Number: 2004_000049

PATIENT
  Age: 23 Year
  Sex: Male

DRUGS (5)
  1. DEPOCYT [Suspect]
     Indication: ACUTE LYMPHOCYTIC LEUKAEMIA
     Dosage: 50 MG;X1; INTRATHECAL
     Route: 037
     Dates: start: 20040517, end: 20040517
  2. METHOTREXATE [Suspect]
     Indication: CHEMOTHERAPY
     Dosage: 650 MG; INTRAVENOUS
     Route: 042
     Dates: start: 20040518, end: 20040518
  3. METHOTREXATE [Suspect]
     Indication: CHEMOTHERAPY
     Dosage: 5800 MG; INTRAVENOUS
     Route: 042
     Dates: start: 20040519, end: 20040519
  4. ASPARAGINASE (ASPARAGINASE) [Suspect]
     Indication: CHEMOTHERAPY
     Dosage: 100000 IU; INTRAMUSCULAR
     Route: 030
     Dates: start: 20040519, end: 20040519
  5. LEUCOVORIN CALCIUM [Suspect]
     Indication: CHEMOTHERAPY
     Dosage: 45 MG; 4 TIMES A DAY; INTRAVENOUS
     Route: 042
     Dates: start: 20040519

REACTIONS (6)
  - DYSPNOEA [None]
  - HEADACHE [None]
  - NAUSEA [None]
  - OXYGEN SATURATION DECREASED [None]
  - PYREXIA [None]
  - VOMITING [None]
